FAERS Safety Report 10283306 (Version 1)
Quarter: 2014Q3

REPORT INFORMATION
  Report Type: Spontaneous
  Country: US (occurrence: None)
  Receive Date: 20140703
  Receipt Date: 20140703
  Transmission Date: 20150326
  Serious: Yes (Death)
  Sender: FDA-Public Use
  Company Number: None

PATIENT
  Age: 47 Year
  Sex: Male
  Weight: 95.26 kg

DRUGS (1)
  1. SOMA [Suspect]
     Active Substance: CARISOPRODOL

REACTIONS (1)
  - Death [None]

NARRATIVE: CASE EVENT DATE: 20140528
